FAERS Safety Report 15309674 (Version 2)
Quarter: 2018Q3

REPORT INFORMATION
  Report Type: Spontaneous
  Country: US (occurrence: US)
  Receive Date: 20180823
  Receipt Date: 20180903
  Transmission Date: 20181010
  Serious: Yes (Other)
  Sender: FDA-Public Use
  Company Number: US-TEVA-2018-US-946519

PATIENT
  Age: 85 Year
  Sex: Female

DRUGS (2)
  1. PREDNISOLONE ACETATE. [Concomitant]
     Active Substance: PREDNISOLONE ACETATE
     Dosage: TWICE DAILY
     Route: 061
  2. DOXORUBICIN [Suspect]
     Active Substance: DOXORUBICIN
     Indication: BREAST CANCER METASTATIC
     Route: 065

REACTIONS (3)
  - Visual acuity reduced [Unknown]
  - Corneal graft rejection [Unknown]
  - Transplant failure [Unknown]
